FAERS Safety Report 7522407-6 (Version None)
Quarter: 2011Q2

REPORT INFORMATION
  Report Type: 
  Country: None (occurrence: None)
  Receive Date: 20110603
  Receipt Date: 20110520
  Transmission Date: 20111010
  Serious: Yes (Other)
  Sender: FDA-Public Use
  Company Number: GB-JNJFOC-20110510399

PATIENT
  Sex: Male

DRUGS (7)
  1. PENTASA [Concomitant]
     Route: 065
  2. REMICADE [Suspect]
     Route: 042
     Dates: start: 20110520
  3. CALCIUM CARBONATE [Concomitant]
     Route: 048
  4. ASPIRIN [Concomitant]
     Route: 048
  5. FERROUS SULFATE TAB [Concomitant]
     Route: 048
  6. REMICADE [Suspect]
     Indication: CROHN'S DISEASE
     Dosage: 6 INFUSIONS
     Route: 042
  7. SIMVASTATIN [Concomitant]
     Route: 048

REACTIONS (3)
  - PRURITUS [None]
  - ANKYLOSING SPONDYLITIS [None]
  - INFUSION RELATED REACTION [None]
